FAERS Safety Report 13404977 (Version 2)
Quarter: 2017Q2

REPORT INFORMATION
  Report Type: Report from Study
  Country: CZ (occurrence: CZ)
  Receive Date: 20170405
  Receipt Date: 20170609
  Transmission Date: 20170830
  Serious: Yes (Other)
  Sender: FDA-Public Use
  Company Number: CZ-BAYER-2017-060113

PATIENT
  Age: 37 Year
  Sex: Female
  Weight: 85 kg

DRUGS (1)
  1. MIRENA [Suspect]
     Active Substance: LEVONORGESTREL
     Indication: CONTRACEPTION
     Dosage: 20 MCG/24HR, CONT
     Route: 015
     Dates: start: 20161011, end: 20170224

REACTIONS (9)
  - Perineal pain [None]
  - Uterine infection [Recovered/Resolved]
  - Metrorrhagia [None]
  - Vaginal haemorrhage [Not Recovered/Not Resolved]
  - Abdominal pain lower [None]
  - Device expulsion [Recovered/Resolved]
  - Uterine haemorrhage [Recovered/Resolved]
  - Pelvic pain [Recovered/Resolved]
  - Vaginal discharge [None]

NARRATIVE: CASE EVENT DATE: 201610
